FAERS Safety Report 13420877 (Version 1)
Quarter: 2017Q2

REPORT INFORMATION
  Report Type: Spontaneous
  Country: CA (occurrence: CA)
  Receive Date: 20170409
  Receipt Date: 20170409
  Transmission Date: 20170830
  Serious: Yes (Other)
  Sender: FDA-Public Use
  Company Number: CA-009507513-1704CAN002457

PATIENT
  Age: 65 Year
  Sex: Male

DRUGS (10)
  1. INVANZ [Suspect]
     Active Substance: ERTAPENEM SODIUM
     Indication: ABDOMINAL ABSCESS
  2. PANTOPRAZOLE [Concomitant]
     Active Substance: PANTOPRAZOLE
  3. ACTONEL [Concomitant]
     Active Substance: RISEDRONATE SODIUM
  4. PLAQUENIL [Concomitant]
     Active Substance: HYDROXYCHLOROQUINE SULFATE
  5. VITAMIN D [Concomitant]
     Active Substance: CHOLECALCIFEROL
  6. PREDNISONE. [Concomitant]
     Active Substance: PREDNISONE
  7. VANCOMYCIN [Concomitant]
     Active Substance: VANCOMYCIN
  8. LYRICA [Concomitant]
     Active Substance: PREGABALIN
  9. CASPOFUNGIN ACETATE. [Concomitant]
     Active Substance: CASPOFUNGIN ACETATE
  10. CRESTOR [Concomitant]
     Active Substance: ROSUVASTATIN CALCIUM

REACTIONS (8)
  - Altered state of consciousness [Unknown]
  - Hallucination, visual [Unknown]
  - Confusional state [Unknown]
  - Soliloquy [Unknown]
  - Disorientation [Unknown]
  - Delirium [Unknown]
  - Agitation [Unknown]
  - Hallucination, auditory [Unknown]

NARRATIVE: CASE EVENT DATE: 20170328
